FAERS Safety Report 7679502-0 (Version None)
Quarter: 2011Q3

REPORT INFORMATION
  Report Type: 
  Country: None (occurrence: None)
  Receive Date: 20110812
  Receipt Date: 20110812
  Transmission Date: 20111222
  Serious: No
  Sender: FDA-Public Use
  Company Number: None

PATIENT
  Age: 13 Year
  Sex: Male
  Weight: 36.287 kg

DRUGS (1)
  1. SERTRALINE HYDROCHLORIDE [Suspect]
     Indication: GENERALISED ANXIETY DISORDER
     Dates: start: 20110712, end: 20110810

REACTIONS (4)
  - PRODUCT SUBSTITUTION ISSUE [None]
  - CRYING [None]
  - ANXIETY [None]
  - CONDITION AGGRAVATED [None]
